FAERS Safety Report 6965672-6 (Version None)
Quarter: 2010Q3

REPORT INFORMATION
  Report Type: 
  Country: None (occurrence: None)
  Receive Date: 20100903
  Receipt Date: 20100823
  Transmission Date: 20110219
  Serious: Yes (Hospitalization)
  Sender: FDA-Public Use
  Company Number: JP-ABBOTT-10P-087-0667783-00

PATIENT
  Age: 68 Year
  Sex: Male

DRUGS (10)
  1. LUPRON DEPOT [Suspect]
     Indication: PROSTATE CANCER STAGE IV
     Route: 058
     Dates: start: 20080611
  2. BLOPRESS [Concomitant]
     Indication: HYPERTENSION
     Route: 048
     Dates: start: 20091021
  3. BICALUTAMIDE [Concomitant]
     Indication: PROSTATE CANCER STAGE IV
     Route: 048
     Dates: start: 20070822, end: 20090304
  4. MAGNESIUM OXIDE [Concomitant]
     Indication: CONSTIPATION
     Route: 048
     Dates: start: 20080312
  5. DETRUSITOL [Concomitant]
     Indication: BENIGN PROSTATIC HYPERPLASIA
     Route: 048
     Dates: start: 20080312
  6. LECICARBON [Concomitant]
     Indication: CONSTIPATION
     Route: 054
     Dates: start: 20081210
  7. ODYNE [Concomitant]
     Indication: PROSTATE CANCER STAGE IV
     Route: 048
     Dates: start: 20090603, end: 20091021
  8. DEPAS [Concomitant]
     Indication: DEPRESSION
     Route: 048
     Dates: start: 20090603
  9. WARFARIN SODIUM [Concomitant]
     Indication: ATRIAL FIBRILLATION
     Route: 048
     Dates: start: 20090701, end: 20091124
  10. WARFARIN SODIUM [Concomitant]
     Route: 048
     Dates: start: 20091125

REACTIONS (6)
  - BACK PAIN [None]
  - CONSTIPATION [None]
  - DRY MOUTH [None]
  - HEPATIC FUNCTION ABNORMAL [None]
  - INJECTION SITE INDURATION [None]
  - SCIATICA [None]
